FAERS Safety Report 5292483-2 (Version None)
Quarter: 2007Q2

REPORT INFORMATION
  Report Type: 
  Country: None (occurrence: None)
  Receive Date: 20070403
  Receipt Date: 20070323
  Transmission Date: 20071010
  Serious: Yes (Other)
  Sender: FDA-Public Use
  Company Number: GXKR2007GB02833

PATIENT
  Age: 84 Year
  Sex: Male
  Weight: 80 kg

DRUGS (13)
  1. SIMVASTATIN [Suspect]
     Indication: BLOOD CHOLESTEROL INCREASED
     Dosage: 1 DF, QD, ORAL
     Route: 048
     Dates: start: 20040401, end: 20061101
  2. AMOXICILIN (AMOXICILLIN) [Concomitant]
  3. DIGOXIN [Concomitant]
  4. INFLUENZA VIRUS VACCINE (INFLUENZA VIRUS VACCINE POLYVALENT) [Concomitant]
  5. FUROSEMIDE [Concomitant]
  6. LANSOPRAZOLE [Concomitant]
  7. LATANOPROST [Concomitant]
  8. MESALAMINE [Concomitant]
  9. PREDNISOLONE [Concomitant]
  10. RAMIPRIL [Concomitant]
  11. TIMOPTOL-LA (TIMOLOL MALEATE) [Concomitant]
  12. WARFARIN SODIUM [Concomitant]
  13. DUOMED [Concomitant]

REACTIONS (3)
  - EAR DEFORMITY ACQUIRED [None]
  - EMOTIONAL DISTRESS [None]
  - EXTERNAL EAR DISORDER [None]
